FAERS Safety Report 13183537 (Version 1)
Quarter: 2017Q1

REPORT INFORMATION
  Report Type: Report from Study
  Country: FR (occurrence: FR)
  Receive Date: 20170203
  Receipt Date: 20170203
  Transmission Date: 20170428
  Serious: Yes (Death)
  Sender: FDA-Public Use
  Company Number: FR-AXELLIA-001040

PATIENT
  Age: 46 Year
  Sex: Male

DRUGS (3)
  1. GENTAMICIN. [Suspect]
     Active Substance: GENTAMICIN
     Indication: PRODUCT USED FOR UNKNOWN INDICATION
     Dosage: ADMINISTERED BEFORE RENAL BIOPSY DURING THE HOSPITAL STAY
  2. VANCOMYCIN [Suspect]
     Active Substance: VANCOMYCIN
     Indication: PRODUCT USED FOR UNKNOWN INDICATION
  3. CISPLATIN. [Suspect]
     Active Substance: CISPLATIN
     Indication: PRODUCT USED FOR UNKNOWN INDICATION
     Dosage: ADMINISTERED BEFORE RENAL BIOPSY DURING THE HOSPITAL STAY

REACTIONS (2)
  - Acute kidney injury [Fatal]
  - Nephropathy [Fatal]
